FAERS Safety Report 7126735 (Version 4)
Quarter: 2020Q3

REPORT INFORMATION
  Report Type: Report from Study
  Country: BE (occurrence: BE)
  Receive Date: 20090923
  Receipt Date: 20100816
  Transmission Date: 20201105
  Serious: Yes (Hospitalization)
  Sender: FDA-Public Use
  Company Number: BE-WYE-H11051409

PATIENT
  Age: 62 Year
  Sex: Male
  Weight: 76 kg

DRUGS (11)
  1. TEMSIROLIMUS. [Suspect]
     Active Substance: TEMSIROLIMUS
     Indication: RENAL CELL CARCINOMA
     Route: 042
     Dates: start: 20090617, end: 20090903
  2. MEDROL [Concomitant]
     Active Substance: METHYLPREDNISOLONE
     Indication: RASH
     Dosage: NOT PROVIDED
     Dates: start: 20090717
  3. BEVACIZUMAB. [Suspect]
     Active Substance: BEVACIZUMAB
     Route: 042
     Dates: start: 20090827, end: 20090827
  4. METFORMIN [Concomitant]
     Active Substance: METFORMIN HYDROCHLORIDE
     Dosage: NOT PROVIDED
     Dates: start: 20090820, end: 20090914
  5. ZYRTEC [Concomitant]
     Active Substance: CETIRIZINE HYDROCHLORIDE
     Indication: RASH
     Dosage: NOT PROVIDED
     Dates: start: 20090702
  6. TEMSIROLIMUS. [Suspect]
     Active Substance: TEMSIROLIMUS
     Route: 042
     Dates: start: 20091001
  7. OMEPRAZOLE. [Concomitant]
     Active Substance: OMEPRAZOLE
     Dosage: NOT PROVIDED
     Dates: start: 20090520
  8. LIPITOR [Concomitant]
     Active Substance: ATORVASTATIN CALCIUM
     Indication: HYPERCHOLESTEROLAEMIA
     Dosage: NOT PROVIDED
  9. AUGMENTIN [Concomitant]
     Active Substance: AMOXICILLIN\CLAVULANATE POTASSIUM
     Dosage: NOT PROVIDED
     Dates: start: 20090911, end: 20090914
  10. BEVACIZUMAB. [Suspect]
     Active Substance: BEVACIZUMAB
     Indication: RENAL CELL CARCINOMA
     Route: 042
     Dates: start: 20090617, end: 20090717
  11. BEVACIZUMAB. [Suspect]
     Active Substance: BEVACIZUMAB
     Dosage: NOT PROVIDED
     Route: 042
     Dates: start: 20091008

REACTIONS (2)
  - Pyrexia [Recovered/Resolved]
  - Pneumonitis [Recovered/Resolved]

NARRATIVE: CASE EVENT DATE: 20090913
